FAERS Safety Report 4558404-2 (Version None)
Quarter: 2005Q1

REPORT INFORMATION
  Report Type: 
  Country: None (occurrence: None)
  Receive Date: 20050103
  Receipt Date: 20041006
  Transmission Date: 20050727
  Serious: Yes (Other)
  Sender: FDA-Public Use
  Company Number: 2004UW20834

PATIENT
  Age: 69 Year
  Sex: Female

DRUGS (7)
  1. CRESTOR [Suspect]
     Indication: BLOOD CHOLESTEROL INCREASED
     Dosage: 10 MG PO
     Route: 048
     Dates: start: 20040801
  2. CRESTOR [Suspect]
     Indication: BLOOD CHOLESTEROL INCREASED
     Dosage: 10 MG PO
     Route: 048
  3. COREG [Concomitant]
  4. COZAAR [Concomitant]
  5. IMDUR [Concomitant]
  6. INSULIN [Concomitant]
  7. ASPIRIN [Concomitant]

REACTIONS (1)
  - RETINAL HAEMORRHAGE [None]
